FAERS Safety Report 9789954 (Version 1)
Quarter: 2013Q4

REPORT INFORMATION
  Report Type: Spontaneous
  Country: US (occurrence: None)
  Receive Date: 20131230
  Receipt Date: 20131230
  Transmission Date: 20140711
  Serious: Yes (Life-Threatening, Hospitalization)
  Sender: FDA-Public Use
  Company Number: None

PATIENT
  Age: 29 Year
  Sex: Female
  Weight: 65.77 kg

DRUGS (2)
  1. AZURETTE [Suspect]
     Indication: POLYCYSTIC OVARIES
     Dosage: 1 PILL ONCE DAILY
     Route: 048
     Dates: start: 20041201, end: 20131218
  2. AZURETTE [Suspect]
     Indication: HORMONE LEVEL ABNORMAL
     Dosage: 1 PILL ONCE DAILY
     Route: 048
     Dates: start: 20041201, end: 20131218

REACTIONS (5)
  - Deep vein thrombosis [None]
  - Peripheral vascular disorder [None]
  - Local swelling [None]
  - Skin discolouration [None]
  - Hormone level abnormal [None]
